FAERS Safety Report 9022325 (Version 1)
Quarter: 2013Q1

REPORT INFORMATION
  Report Type: Spontaneous
  Country: KR (occurrence: KR)
  Receive Date: 20130118
  Receipt Date: 20130118
  Transmission Date: 20140127
  Serious: Yes (Hospitalization)
  Sender: FDA-Public Use
  Company Number: PHHY2013KR003491

PATIENT
  Age: 50 None
  Sex: Male
  Weight: 55 kg

DRUGS (5)
  1. ZOMETA [Suspect]
     Indication: PLASMA CELL MYELOMA
     Dosage: 4 MG, UNK
     Route: 042
     Dates: start: 20121219, end: 20121231
  2. PETHIDINE HCL [Concomitant]
     Indication: PAIN
     Dosage: 50 MG, ONCE/SINGLE
     Route: 042
     Dates: start: 20121219, end: 20121223
  3. GALAMINT [Concomitant]
     Indication: MUSCLE CONTRACTIONS INVOLUNTARY
     Dosage: 20 MG, ONCE/SINGLE
     Route: 042
     Dates: start: 20121219, end: 20121226
  4. YAMATETAN [Concomitant]
     Indication: BACTERIAL INFECTION
     Dosage: 1 G, BID
     Route: 042
     Dates: start: 20121224, end: 20121226
  5. PREDNISOLONE [Concomitant]
     Dosage: 50 MG, UNK
     Route: 048
     Dates: start: 20120719, end: 20121212

REACTIONS (3)
  - Fall [Recovering/Resolving]
  - Pelvic pain [Recovering/Resolving]
  - Femoral neck fracture [Recovering/Resolving]
